FAERS Safety Report 5717279-6 (Version None)
Quarter: 2008Q2

REPORT INFORMATION
  Report Type: 
  Country: None (occurrence: None)
  Receive Date: 20080423
  Receipt Date: 20080407
  Transmission Date: 20081010
  Serious: Yes (Other)
  Sender: FDA-Public Use
  Company Number: S08-UKI-01453-01

PATIENT
  Age: 56 Year
  Sex: Male

DRUGS (7)
  1. CITALOPRAM HYDROBROMIDE [Suspect]
     Indication: ANXIETY
     Dates: start: 20051205
  2. CITALOPRAM HYDROBROMIDE [Suspect]
     Indication: DEPRESSION
     Dates: start: 20051205
  3. CITALOPRAM HYDROBROMIDE [Suspect]
     Indication: IRRITABLE BOWEL SYNDROME
     Dates: start: 20051205
  4. ALCOHOL [Suspect]
     Dates: start: 20051216
  5. ATIVAN [Concomitant]
  6. NICORETTE [Concomitant]
  7. ACETAMINOPHEN [Concomitant]

REACTIONS (9)
  - AGGRESSION [None]
  - AGITATION [None]
  - ALCOHOL INTERACTION [None]
  - AMNESIA [None]
  - CONDITION AGGRAVATED [None]
  - CONFUSIONAL STATE [None]
  - DEREALISATION [None]
  - PANIC DISORDER [None]
  - PARANOIA [None]
